FAERS Safety Report 4570042-4 (Version None)
Quarter: 2005Q1

REPORT INFORMATION
  Report Type: 
  Country: None (occurrence: None)
  Receive Date: 20050204
  Receipt Date: 20020625
  Transmission Date: 20050727
  Serious: Yes (Death)
  Sender: FDA-Public Use
  Company Number: JP-ABBOTT-02P-087-0195536-00

PATIENT
  Sex: Male
  Weight: 39 kg

DRUGS (7)
  1. KALETRA [Suspect]
     Indication: HIV INFECTION
     Route: 048
     Dates: start: 20010524, end: 20031010
  2. DIDANOSINE [Suspect]
     Indication: HIV INFECTION
     Route: 048
     Dates: start: 20010524, end: 20010620
  3. DIDANOSINE [Suspect]
     Route: 048
     Dates: start: 20010621, end: 20031010
  4. LAMIVUDINE AND ZIDOVUDINE [Concomitant]
     Indication: HIV INFECTION
     Route: 048
     Dates: start: 20010401, end: 20010523
  5. BACTRIM [Concomitant]
     Indication: INFECTION PROPHYLAXIS
     Route: 048
     Dates: start: 20010401, end: 20031010
  6. ACYCLOVIR [Concomitant]
     Indication: ANTIVIRAL PROPHYLAXIS
     Route: 048
     Dates: start: 20010401, end: 20031010
  7. FREEZE-DRIED HUMAN BLOOD-COAGULATION FACTOR IX [Concomitant]
     Indication: HAEMORRHAGE
     Route: 042
     Dates: start: 20010401, end: 20031010

REACTIONS (7)
  - ANAEMIA [None]
  - CACHEXIA [None]
  - DEPRESSED LEVEL OF CONSCIOUSNESS [None]
  - HEPATIC CIRRHOSIS [None]
  - HEPATIC FAILURE [None]
  - LIPODYSTROPHY ACQUIRED [None]
  - MULTI-ORGAN FAILURE [None]
